FAERS Safety Report 21453195 (Version 5)
Quarter: 2022Q4

REPORT INFORMATION
  Report Type: Report from Study
  Country: ES (occurrence: ES)
  Receive Date: 20221013
  Receipt Date: 20221027
  Transmission Date: 20230113
  Serious: Yes (Hospitalization)
  Sender: FDA-Public Use
  Company Number: ES-ABBVIE-4149527

PATIENT
  Age: 71 Year
  Sex: Male
  Weight: 63 kg

DRUGS (5)
  1. CARBIDOPA\LEVODOPA [Suspect]
     Active Substance: CARBIDOPA\LEVODOPA
     Indication: Parkinson^s disease
     Route: 050
     Dates: start: 20221006, end: 20221014
  2. CARBIDOPA\LEVODOPA [Suspect]
     Active Substance: CARBIDOPA\LEVODOPA
     Dosage: START DATE OCT 2022
     Route: 050
  3. CARBIDOPA\LEVODOPA [Suspect]
     Active Substance: CARBIDOPA\LEVODOPA
     Dosage: INCREASE THE CONTINUOUS DOSE BY 0.2 ML/H AND THE EXTRA DOSE BY 1.0 ML?DISCONTINUED OCT 2022
     Route: 050
     Dates: start: 20221014
  4. CARBIDOPA\LEVODOPA [Suspect]
     Active Substance: CARBIDOPA\LEVODOPA
  5. CARBIDOPA\LEVODOPA [Suspect]
     Active Substance: CARBIDOPA\LEVODOPA

REACTIONS (13)
  - Haematuria [Recovered/Resolved]
  - Screaming [Unknown]
  - Abdominal pain [Recovered/Resolved]
  - Fall [Unknown]
  - Dizziness [Recovered/Resolved]
  - Flatulence [Recovered/Resolved]
  - Pneumoperitoneum [Recovered/Resolved]
  - Therapeutic product effect incomplete [Recovering/Resolving]
  - Gait inability [Recovered/Resolved]
  - Head titubation [Recovered/Resolved]
  - Knee deformity [Recovered/Resolved]
  - Stoma site discharge [Recovered/Resolved]
  - Stoma site discharge [Recovered/Resolved]

NARRATIVE: CASE EVENT DATE: 20221007
